FAERS Safety Report 16489173 (Version 1)
Quarter: 2019Q2

REPORT INFORMATION
  Report Type: Spontaneous
  Country: IT (occurrence: IT)
  Receive Date: 20190628
  Receipt Date: 20190628
  Transmission Date: 20190711
  Serious: Yes (Congenital Anomaly)
  Sender: FDA-Public Use
  Company Number: PHHY2019IT143665

PATIENT

DRUGS (1)
  1. LEVETIRACETAM. [Suspect]
     Active Substance: LEVETIRACETAM
     Indication: FOETAL EXPOSURE DURING PREGNANCY
     Dosage: MOTHER DOSE: 2000 MG, DAILY
     Route: 064

REACTIONS (2)
  - Maternal exposure during pregnancy [Recovered/Resolved]
  - Cleft palate [Unknown]
